FAERS Safety Report 4710609-3 (Version None)
Quarter: 2005Q3

REPORT INFORMATION
  Report Type: 
  Country: None (occurrence: None)
  Receive Date: 20050707
  Receipt Date: 20050614
  Transmission Date: 20060218
  Serious: No
  Sender: FDA-Public Use
  Company Number: 11613

PATIENT
  Age: 17 Year

DRUGS (1)
  1. METHOTREXATE [Suspect]
     Indication: ACUTE LYMPHOCYTIC LEUKAEMIA
     Dosage: 5 G/M2 PER_CYCLE/12 MG PER_CYCLE IV
     Route: 042

REACTIONS (6)
  - CRANIAL NEUROPATHY [None]
  - DYSARTHRIA [None]
  - FACIAL PARESIS [None]
  - HEMIPARESIS [None]
  - HYPOGLOSSAL NERVE DISORDER [None]
  - NUCLEAR MAGNETIC RESONANCE IMAGING ABNORMAL [None]
